FAERS Safety Report 9394555 (Version 2)
Quarter: 2013Q3

REPORT INFORMATION
  Report Type: Spontaneous
  Country: US (occurrence: US)
  Receive Date: 20130711
  Receipt Date: 20130806
  Transmission Date: 20140515
  Serious: Yes (Other)
  Sender: FDA-Public Use
  Company Number: PHEH2013US014537

PATIENT
  Sex: Female

DRUGS (4)
  1. TEGRETOL [Suspect]
     Dosage: UNK UKN, UNK
     Dates: start: 1982
  2. VITAMIN D [Concomitant]
     Dosage: UNK UKN, UNK
  3. CENTRUM [Concomitant]
     Dosage: UNK UKN, UNK
  4. TOPIRAMATE [Concomitant]
     Dosage: UNK UKN, UNK

REACTIONS (1)
  - Convulsion [Unknown]
